FAERS Safety Report 5631049-9 (Version None)
Quarter: 2008Q1

REPORT INFORMATION
  Report Type: 
  Country: None (occurrence: None)
  Receive Date: 20080219
  Receipt Date: 20080215
  Transmission Date: 20080703
  Serious: Yes (Death, Hospitalization, Other)
  Sender: FDA-Public Use
  Company Number: SE-ABBOTT-07P-150-0420318-00

PATIENT
  Age: 60 Year
  Sex: Male

DRUGS (6)
  1. HUMIRA [Suspect]
     Indication: CROHN'S DISEASE
     Route: 058
     Dates: start: 20070311, end: 20070822
  2. OMEPRAZOL ABCUR [Concomitant]
     Indication: DRUG USE FOR UNKNOWN INDICATION
  3. ACETAMINOPHEN [Concomitant]
     Indication: DRUG USE FOR UNKNOWN INDICATION
  4. PROPIOMAZINE MALEATE [Concomitant]
     Indication: DRUG USE FOR UNKNOWN INDICATION
  5. ZINC SULFATE [Concomitant]
     Indication: DRUG USE FOR UNKNOWN INDICATION
  6. CODEINE PHOSPHATE [Concomitant]
     Indication: DRUG USE FOR UNKNOWN INDICATION

REACTIONS (1)
  - ACUTE MYELOID LEUKAEMIA [None]
